FAERS Safety Report 21684364 (Version 1)
Quarter: 2022Q4

REPORT INFORMATION
  Report Type: Spontaneous
  Country: US (occurrence: US)
  Receive Date: 20221205
  Receipt Date: 20221205
  Transmission Date: 20230113
  Serious: No
  Sender: FDA-Public Use
  Company Number: US-ELI_LILLY_AND_COMPANY-US202211010980

PATIENT
  Sex: Male

DRUGS (2)
  1. MOUNJARO [Suspect]
     Active Substance: TIRZEPATIDE
     Indication: Weight decreased
     Dosage: 15 MG, UNKNOWN
     Route: 065
     Dates: start: 202210
  2. VALSARTAN [Concomitant]
     Active Substance: VALSARTAN
     Indication: Blood pressure diastolic increased
     Dosage: UNK
     Dates: start: 2017

REACTIONS (5)
  - Presyncope [Unknown]
  - Orthostatic hypotension [Unknown]
  - Off label use [Unknown]
  - Blood glucose decreased [Unknown]
  - Vomiting [Unknown]
